FAERS Safety Report 15807049 (Version 1)
Quarter: 2019Q1

REPORT INFORMATION
  Report Type: Spontaneous
  Country: US (occurrence: US)
  Receive Date: 20190110
  Receipt Date: 20190110
  Transmission Date: 20190417
  Serious: Yes (Other)
  Sender: FDA-Public Use
  Company Number: US-MYLANLABS-2019M1000962

PATIENT
  Age: 26 Year
  Sex: Female

DRUGS (1)
  1. AMITRIPTYLINE/PERPHENAZINE [Suspect]
     Active Substance: AMITRIPTYLINE\PERPHENAZINE
     Indication: DEPRESSION
     Dosage: UNK, TID

REACTIONS (11)
  - Speech disorder [Unknown]
  - Hypomania [Unknown]
  - Insomnia [Unknown]
  - Euphoric mood [Unknown]
  - Distractibility [Unknown]
  - Intentional overdose [Unknown]
  - Suicide attempt [Unknown]
  - Psychomotor hyperactivity [Unknown]
  - Coma [Unknown]
  - Judgement impaired [Unknown]
  - Somnolence [Unknown]

NARRATIVE: CASE EVENT DATE: 1973
